FAERS Safety Report 4516679-X (Version None)
Quarter: 2004Q4

REPORT INFORMATION
  Report Type: 
  Country: None (occurrence: None)
  Receive Date: 20041130
  Receipt Date: 20041112
  Transmission Date: 20050328
  Serious: Yes (Death, Hospitalization)
  Sender: FDA-Public Use
  Company Number: D01200404717

PATIENT
  Age: 55 Year
  Sex: Male

DRUGS (17)
  1. CISPLATIN-SODIUM- 80% MG/M2 [Suspect]
     Indication: SMALL CELL LUNG CANCER EXTENSIVE STAGE
     Dosage: 80 MG/M2 CONT 0 INTRAVENOUS NOS
     Route: 042
     Dates: start: 20041103, end: 20041103
  2. ETOPOSIDE [Suspect]
     Indication: SMALL CELL LUNG CANCER EXTENSIVE STAGE
     Dosage: 120 MG/M2 GIVEN ON DAYS 1, 2  AND 3, IN A 30-MINUTE IFNUSION - INTRAVENOUS NOS
     Route: 042
     Dates: start: 20041103, end: 20041105
  3. MADOPAR [Concomitant]
  4. ATENOLOL [Concomitant]
  5. SERTRALINE HCL [Concomitant]
  6. ESOMEPRAZOLE [Concomitant]
  7. KETOROLAC [Concomitant]
  8. DEXAMETHASONE [Concomitant]
  9. FENTANYL [Concomitant]
  10. ALLOPURINOL [Concomitant]
  11. CARDIAZOL-PARACODINA [Concomitant]
  12. FILGRASTIM [Concomitant]
  13. RANITIDINE [Concomitant]
  14. ONDANSETRON [Concomitant]
  15. ALIZAPRIDE [Concomitant]
  16. DARBEPOETIN ALFA [Concomitant]
  17. METOCLOPRAMIDE [Concomitant]

REACTIONS (11)
  - BLOOD CREATININE INCREASED [None]
  - CHEST PAIN [None]
  - DYSPNOEA [None]
  - FIBRIN D DIMER INCREASED [None]
  - GENERAL PHYSICAL HEALTH DETERIORATION [None]
  - HYPOCALCAEMIA [None]
  - HYPOTENSION [None]
  - MYOGLOBIN BLOOD INCREASED [None]
  - NEUTROPENIA [None]
  - PULMONARY EMBOLISM [None]
  - THROMBOCYTOPENIA [None]
